FAERS Safety Report 23810390 (Version 1)
Quarter: 2024Q2

REPORT INFORMATION
  Report Type: Spontaneous
  Country: US (occurrence: None)
  Receive Date: 20240501
  Receipt Date: 20240501
  Transmission Date: 20240716
  Serious: Yes (Life-Threatening)
  Sender: FDA-Public Use
  Company Number: None

PATIENT
  Age: 44 Year
  Sex: Female
  Weight: 128.25 kg

DRUGS (1)
  1. MUCINEX INSTASOOTHE SORE THROAT PLUS PAIN RELIEF NOS [Suspect]
     Active Substance: UNSPECIFIED INGREDIENT
     Indication: Oropharyngeal pain
     Dosage: OTHER QUANTITY : 1 1;?FREQUENCY : 3 TIMES A DAY;?
     Route: 048
     Dates: start: 20240429, end: 20240501

REACTIONS (1)
  - Drug hypersensitivity [None]

NARRATIVE: CASE EVENT DATE: 20240501
